FAERS Safety Report 16129594 (Version 1)
Quarter: 2019Q1

REPORT INFORMATION
  Report Type: Report from Study
  Country: TW (occurrence: TW)
  Receive Date: 20190328
  Receipt Date: 20190328
  Transmission Date: 20190418
  Serious: Yes (Other)
  Sender: FDA-Public Use
  Company Number: TW-JNJFOC-20190325572

PATIENT
  Sex: Male
  Weight: 55 kg

DRUGS (1)
  1. STELARA [Suspect]
     Active Substance: USTEKINUMAB
     Indication: PSORIASIS
     Dosage: WEEK 0, 4, AND THEN EACH 12 WEEK
     Route: 058
     Dates: start: 20180102, end: 20190319

REACTIONS (1)
  - Cirrhosis alcoholic [Not Recovered/Not Resolved]

NARRATIVE: CASE EVENT DATE: 2019
